FAERS Safety Report 5854436-2 (Version None)
Quarter: 2008Q3

REPORT INFORMATION
  Report Type: 
  Country: None (occurrence: None)
  Receive Date: 20080822
  Receipt Date: 20080812
  Transmission Date: 20090109
  Serious: Yes (Hospitalization)
  Sender: FDA-Public Use
  Company Number: DE-PFIZER INC-2008044957

PATIENT
  Sex: Male

DRUGS (15)
  1. CHANTIX [Suspect]
     Indication: SMOKING CESSATION THERAPY
     Dosage: TEXT:2 COAT. TAB-FREQ:BID
     Route: 048
     Dates: start: 20080218, end: 20080301
  2. ANTIHYPERTENSIVES [Concomitant]
  3. FENOTEROL [Concomitant]
  4. DELIX [Concomitant]
  5. AMLODIPINE [Concomitant]
  6. TORSEMIDE [Concomitant]
  7. MOXONIDINE [Concomitant]
  8. ASPIRIN [Concomitant]
  9. PREDNISOLON [Concomitant]
  10. THEOPHYLLINE [Concomitant]
  11. SPIRIVA [Concomitant]
  12. SYMBICORT [Concomitant]
  13. BERODUAL [Concomitant]
  14. IDEOS [Concomitant]
  15. ALENDRONATE SODIUM [Concomitant]

REACTIONS (1)
  - CHRONIC OBSTRUCTIVE PULMONARY DISEASE [None]
